FAERS Safety Report 7305444-6 (Version None)
Quarter: 2011Q1

REPORT INFORMATION
  Report Type: 
  Country: None (occurrence: None)
  Receive Date: 20110222
  Receipt Date: 20110216
  Transmission Date: 20110831
  Serious: Yes (Death, Other)
  Sender: FDA-Public Use
  Company Number: CA-GENZYME-FLUD-1000721

PATIENT
  Age: 8 Year
  Sex: Male

DRUGS (5)
  1. FLUDARA [Suspect]
     Indication: CORD BLOOD TRANSPLANT THERAPY
     Dosage: 40 MG/M2, QD ON DAYS -6 TO -2
     Route: 042
  2. CYCLOSPORINE [Concomitant]
     Indication: PROPHYLAXIS AGAINST GRAFT VERSUS HOST DISEASE
     Route: 065
  3. MYCOPHENOLATE MOFETIL [Concomitant]
     Indication: PROPHYLAXIS AGAINST GRAFT VERSUS HOST DISEASE
     Dosage: 15 MG/KG, BID, DAYS -3 TO 30
     Route: 065
  4. THYMOGLOBULIN [Suspect]
     Indication: CORD BLOOD TRANSPLANT THERAPY
     Dosage: 2.5 MG/KG, QD ON DAYS -3 TO -1
     Route: 042
  5. CYCLOPHOSPHAMIDE [Suspect]
     Indication: CORD BLOOD TRANSPLANT THERAPY
     Dosage: 50 MG/KG, ONCE ON DAY -6
     Route: 042

REACTIONS (4)
  - PARAINFLUENZAE VIRUS INFECTION [None]
  - NEOPLASM MALIGNANT [None]
  - NEUROBLASTOMA [None]
  - EPSTEIN-BARR VIRUS ASSOCIATED LYMPHOPROLIFERATIVE DISORDER [None]
